FAERS Safety Report 5266847-7 (Version None)
Quarter: 2007Q1

REPORT INFORMATION
  Report Type: 
  Country: None (occurrence: None)
  Receive Date: 20070126
  Receipt Date: 20070116
  Transmission Date: 20070707
  Serious: Yes (Other)
  Sender: FDA-Public Use
  Company Number: GAM-137-06-UK

PATIENT
  Age: 14 Year
  Sex: Female

DRUGS (1)
  1. OCTAGAM [Suspect]
     Indication: BONE MARROW TRANSPLANT
     Dosage: 22.5 G; I.V.
     Route: 042
     Dates: start: 20060630

REACTIONS (1)
  - HEPATITIS B [None]
